FAERS Safety Report 20591213 (Version 4)
Quarter: 2022Q2

REPORT INFORMATION
  Report Type: Spontaneous
  Country: US (occurrence: US)
  Receive Date: 20220314
  Receipt Date: 20220604
  Transmission Date: 20220721
  Serious: No
  Sender: FDA-Public Use
  Company Number: US-SA-SAC20220309001821

PATIENT
  Age: 78 Year
  Sex: Male

DRUGS (1)
  1. DUPIXENT [Suspect]
     Active Substance: DUPILUMAB
     Indication: Nasal polyps
     Dosage: 300 MG
     Route: 058
     Dates: start: 202103

REACTIONS (9)
  - Ocular hyperaemia [Unknown]
  - Eye pruritus [Unknown]
  - Ear disorder [Unknown]
  - Asthma [Unknown]
  - Skin odour abnormal [Unknown]
  - Muckle-Wells syndrome [Unknown]
  - Rash [Unknown]
  - Product use in unapproved indication [Unknown]
  - Intentional product misuse [Unknown]

NARRATIVE: CASE EVENT DATE: 20210301
